FAERS Safety Report 6633430-8 (Version None)
Quarter: 2010Q1

REPORT INFORMATION
  Report Type: 
  Country: None (occurrence: None)
  Receive Date: 20100312
  Receipt Date: 20100304
  Transmission Date: 20100710
  Serious: Yes (Life-Threatening, Other)
  Sender: FDA-Public Use
  Company Number: BR-ABBOTT-10P-020-0630626-00

PATIENT
  Age: 38 Year
  Sex: Male

DRUGS (3)
  1. LEVOTHYROXINE [Suspect]
     Indication: HYPOTHYROIDISM
  2. LEVOTHYROXINE [Suspect]
  3. RADIOIDINE [Concomitant]
     Indication: HYPERTHYROIDISM
     Dosage: THREE APPLICATIONS

REACTIONS (2)
  - CONFUSIONAL STATE [None]
  - SUICIDE ATTEMPT [None]
